FAERS Safety Report 10743779 (Version 3)
Quarter: 2015Q2

REPORT INFORMATION
  Report Type: Spontaneous
  Country: US (occurrence: US)
  Receive Date: 20150128
  Receipt Date: 20150423
  Transmission Date: 20150821
  Serious: No
  Sender: FDA-Public Use
  Company Number: US-009507513-1501USA009642

PATIENT
  Age: 16 Year
  Sex: Female
  Weight: 117.9 kg

DRUGS (1)
  1. NEXPLANON [Suspect]
     Active Substance: ETONOGESTREL
     Indication: CONTRACEPTION
     Dosage: 1 ROD/ ONE TIME INSERTION, LEFT ARM
     Route: 059
     Dates: start: 20140910, end: 20141217

REACTIONS (7)
  - Implant site fibrosis [Unknown]
  - Device deployment issue [Recovered/Resolved]
  - Medical device complication [Recovered/Resolved]
  - Insomnia [Unknown]
  - Device difficult to use [Recovered/Resolved]
  - Implant site pain [Unknown]
  - Device kink [Recovered/Resolved]

NARRATIVE: CASE EVENT DATE: 2014
